FAERS Safety Report 17061213 (Version 1)
Quarter: 2019Q4

REPORT INFORMATION
  Report Type: Report from Study
  Country: CZ (occurrence: CZ)
  Receive Date: 20191121
  Receipt Date: 20191121
  Transmission Date: 20200122
  Serious: Yes (Other)
  Sender: FDA-Public Use
  Company Number: CZ-BAYER-2019-204215

PATIENT
  Age: 31 Year
  Sex: Female
  Weight: 103 kg

DRUGS (2)
  1. MIRENA [Suspect]
     Active Substance: LEVONORGESTREL
     Indication: CONTRACEPTION
  2. MIRENA [Suspect]
     Active Substance: LEVONORGESTREL
     Indication: CONTRACEPTION
     Dosage: 20 MCG/24HR, CONT
     Route: 015
     Dates: start: 20190917, end: 20191008

REACTIONS (6)
  - Hypertrichosis [Recovering/Resolving]
  - Back pain [Recovering/Resolving]
  - Genital haemorrhage [None]
  - Mood altered [Recovering/Resolving]
  - Abdominal pain lower [Recovering/Resolving]
  - Acne [Recovering/Resolving]

NARRATIVE: CASE EVENT DATE: 20190920
